FAERS Safety Report 5368408-8 (Version None)
Quarter: 2007Q2

REPORT INFORMATION
  Report Type: 
  Country: None (occurrence: None)
  Receive Date: 20070620
  Receipt Date: 20070604
  Transmission Date: 20071010
  Serious: Yes (Hospitalization)
  Sender: FDA-Public Use
  Company Number: DSA_29998_2007

PATIENT
  Age: 87 Year
  Sex: Male

DRUGS (4)
  1. ENALAPRIL MALEATE (ENALAPRIL MALEATE) 5 MG [Suspect]
     Dosage: (2.05 MG QD ORAL)
     Route: 048
     Dates: end: 20070419
  2. TOREM /01036501/ (TOREM) 10 MG [Suspect]
     Dosage: 10 MG QD ORAL
     Route: 048
     Dates: end: 20070419
  3. TENORMIN (TENORMIN) 25 MG [Suspect]
     Dosage: 12.5 MG QD ORAL
     Route: 048
     Dates: end: 20070419
  4. ALDACTONE [Suspect]
     Dosage: 50 MG 2X/WEEK ORAL
     Route: 048
     Dates: end: 20070419

REACTIONS (4)
  - BLOOD CREATININE INCREASED [None]
  - BLOOD POTASSIUM INCREASED [None]
  - DEHYDRATION [None]
  - HYPOTENSION [None]
